FAERS Safety Report 18573763 (Version 1)
Quarter: 2020Q4

REPORT INFORMATION
  Report Type: Spontaneous
  Country: TR (occurrence: TR)
  Receive Date: 20201203
  Receipt Date: 20201203
  Transmission Date: 20210114
  Serious: Yes (Hospitalization)
  Sender: FDA-Public Use
  Company Number: TR-GILEAD-2020-0506329

PATIENT
  Age: 44 Year
  Sex: Male

DRUGS (1)
  1. VIREAD [Suspect]
     Active Substance: TENOFOVIR DISOPROXIL FUMARATE
     Indication: HEPATITIS B
     Route: 065

REACTIONS (7)
  - Vomiting [Unknown]
  - Dysphagia [Unknown]
  - Stomatitis [Unknown]
  - Nausea [Unknown]
  - Weight decreased [Unknown]
  - Headache [Unknown]
  - Oropharyngeal candidiasis [Unknown]
